FAERS Safety Report 21565640 (Version 19)
Quarter: 2024Q3

REPORT INFORMATION
  Report Type: Report from Study
  Country: US (occurrence: US)
  Receive Date: 20221108
  Receipt Date: 20240809
  Transmission Date: 20241016
  Serious: Yes (Hospitalization, Other)
  Sender: BAXTER
  Company Number: US-BAXTER-2022BAX023353

PATIENT
  Age: 81 Year
  Sex: Female
  Weight: 54.3 kg

DRUGS (66)
  1. DOXORUBICIN [Suspect]
     Active Substance: DOXORUBICIN
     Indication: Diffuse large B-cell lymphoma stage IV
     Dosage: 50 MG/SQ. METER, 1Q3W, C1D1 - C6D1, DOSAGE FORM: SOLUTION FOR INFUSION
     Route: 042
     Dates: start: 20220610, end: 20220923
  2. CYCLOPHOSPHAMIDE [Suspect]
     Active Substance: CYCLOPHOSPHAMIDE
     Indication: Diffuse large B-cell lymphoma stage IV
     Dosage: 750 MG/SQ. METER, 1Q3W, C1D1 - C6D1, DOSAGE FORM: POWDER FOR SOLUTION FOR INJECTION
     Route: 042
     Dates: start: 20220610, end: 20220923
  3. EPCORITAMAB [Suspect]
     Active Substance: EPCORITAMAB
     Indication: Diffuse large B-cell lymphoma stage IV
     Dosage: PRIMING DOSE: 0.16 MG, SINGLE (DUOBODY CD3XCD20), C1D1
     Route: 058
     Dates: start: 20220610, end: 20220610
  4. EPCORITAMAB [Suspect]
     Active Substance: EPCORITAMAB
     Dosage: INTERMEDIATE DOSE 0.8 MG, SINGLE, C1D8
     Route: 058
     Dates: start: 20220617, end: 20220617
  5. EPCORITAMAB [Suspect]
     Active Substance: EPCORITAMAB
     Dosage: FULL DOSE: 48 MG, WEEKLY, C1D15 - C4D15
     Route: 058
     Dates: start: 20220624, end: 20220826
  6. EPCORITAMAB [Suspect]
     Active Substance: EPCORITAMAB
     Dosage: FULL DOSE: 48 MG, 1Q3W, C5D1-C6D1
     Route: 058
     Dates: start: 20220902, end: 20220923
  7. EPCORITAMAB [Suspect]
     Active Substance: EPCORITAMAB
     Dosage: FULL DOSE: 48 MG, 1Q4W, C7D1, C8D1
     Route: 058
     Dates: start: 20221021, end: 20221021
  8. EPCORITAMAB [Suspect]
     Active Substance: EPCORITAMAB
     Dosage: 48 MG
     Route: 058
     Dates: start: 20221216
  9. EPCORITAMAB [Suspect]
     Active Substance: EPCORITAMAB
     Dosage: 48 MG
     Route: 065
     Dates: start: 20220708
  10. EPCORITAMAB [Suspect]
     Active Substance: EPCORITAMAB
     Dosage: 48 MG
     Route: 065
     Dates: start: 20221118
  11. EPCORITAMAB [Suspect]
     Active Substance: EPCORITAMAB
     Dosage: 48 MG
     Route: 065
     Dates: start: 20221216
  12. PREDNISONE [Suspect]
     Active Substance: PREDNISONE
     Indication: Diffuse large B-cell lymphoma stage IV
     Dosage: 100 MILLIGRAM, QD, CYCLE 1
     Route: 048
     Dates: start: 20220610, end: 20220614
  13. PREDNISONE [Suspect]
     Active Substance: PREDNISONE
     Dosage: 100 MILLIGRAM, QD, CYCLE 1
     Route: 048
     Dates: start: 20220617, end: 20220620
  14. PREDNISONE [Suspect]
     Active Substance: PREDNISONE
     Dosage: 100 MILLIGRAM, QD, CYCLE 1
     Route: 048
     Dates: start: 20220624, end: 20220627
  15. PREDNISONE [Suspect]
     Active Substance: PREDNISONE
     Dosage: 100 MILLIGRAM, QD, CYCLE 2
     Route: 048
     Dates: start: 20220701, end: 20220705
  16. PREDNISONE [Suspect]
     Active Substance: PREDNISONE
     Dosage: 100 MILLIGRAM, QD, CYCLE 3
     Route: 048
     Dates: start: 20220722, end: 20220726
  17. PREDNISONE [Suspect]
     Active Substance: PREDNISONE
     Dosage: 100 MILLIGRAM, QD, CYCLE 4
     Route: 048
     Dates: start: 20220812, end: 20220816
  18. PREDNISONE [Suspect]
     Active Substance: PREDNISONE
     Dosage: 100 MILLIGRAM, QD, CYCLE 5
     Route: 048
     Dates: start: 20220902, end: 20220906
  19. PREDNISONE [Suspect]
     Active Substance: PREDNISONE
     Dosage: 100 MILLIGRAM, QD, CYCLE 6
     Route: 048
     Dates: start: 20220923, end: 20220927
  20. VINCRISTINE [Suspect]
     Active Substance: VINCRISTINE
     Indication: Diffuse large B-cell lymphoma stage IV
     Dosage: 1.4 MILLIGRAM/SQ. METER, 1Q3W
     Route: 042
     Dates: start: 20220610, end: 20220610
  21. VINCRISTINE [Suspect]
     Active Substance: VINCRISTINE
     Dosage: 1 MILLIGRAM/SQ. METER, 1Q3W
     Route: 042
     Dates: start: 20220701, end: 20220701
  22. VINCRISTINE [Suspect]
     Active Substance: VINCRISTINE
     Dosage: 1.4 MILLIGRAM/SQ. METER, 1Q3W(WITH A RECOMMENDED CAP OF 2 MG)
     Route: 042
     Dates: start: 20220722, end: 20220812
  23. VINCRISTINE [Suspect]
     Active Substance: VINCRISTINE
     Dosage: 1 MILLIGRAM/SQ. METER, 1Q3W
     Route: 042
     Dates: start: 20220902, end: 20220902
  24. RITUXIMAB [Suspect]
     Active Substance: RITUXIMAB
     Indication: Diffuse large B-cell lymphoma stage IV
     Dosage: 375 MILLIGRAM/SQ. METER, 1Q3W, C1D1 - C6D1
     Route: 042
     Dates: start: 20220610, end: 20220923
  25. RITUXIMAB [Suspect]
     Active Substance: RITUXIMAB
     Dosage: 375 MG/M2
     Route: 065
     Dates: start: 20220701
  26. DIPHENHYDRAMINE [Concomitant]
     Active Substance: DIPHENHYDRAMINE
     Indication: Premedication
     Dosage: 25 MG
     Route: 042
     Dates: start: 20220902, end: 20220923
  27. ACETAMINOPHEN [Concomitant]
     Active Substance: ACETAMINOPHEN
     Indication: Premedication
     Dosage: 650 MG
     Route: 048
     Dates: start: 20220625, end: 20220625
  28. ACETAMINOPHEN [Concomitant]
     Active Substance: ACETAMINOPHEN
     Dosage: 650 MG
     Route: 048
     Dates: start: 20220722, end: 20220923
  29. ACETAMINOPHEN [Concomitant]
     Active Substance: ACETAMINOPHEN
     Dosage: 650 MG
     Route: 048
     Dates: start: 20220902, end: 20220923
  30. ACETAMINOPHEN [Concomitant]
     Active Substance: ACETAMINOPHEN
     Dosage: 650 MG
     Route: 048
     Dates: start: 20220910, end: 20230317
  31. PEGFILGRASTIM [Concomitant]
     Active Substance: PEGFILGRASTIM
     Dosage: UNK
     Route: 065
     Dates: start: 20220610, end: 20220923
  32. CONJUGATED ESTROGENS [Concomitant]
     Active Substance: ESTROGENS, CONJUGATED
     Dosage: UNK
     Route: 065
     Dates: start: 20210716
  33. SODIUM CHLORIDE [Concomitant]
     Active Substance: SODIUM CHLORIDE
     Indication: Pneumonia viral
     Dosage: UNK
     Route: 065
     Dates: start: 20220623, end: 20221011
  34. NEULASTA [Concomitant]
     Active Substance: PEGFILGRASTIM
     Dosage: UNK
     Route: 065
     Dates: start: 20220610, end: 20220923
  35. VALACYCLOVIR [Concomitant]
     Active Substance: VALACYCLOVIR HYDROCHLORIDE
     Dosage: UNK
     Route: 065
     Dates: start: 20220611, end: 20221004
  36. ATROVENT [Concomitant]
     Active Substance: IPRATROPIUM BROMIDE
     Dosage: UNK
     Route: 065
  37. GUAIFENESIN [Concomitant]
     Active Substance: GUAIFENESIN
     Dosage: UNK
     Route: 065
     Dates: start: 20220826, end: 20220911
  38. ACYCLOVIR [Concomitant]
     Active Substance: ACYCLOVIR
     Dosage: UNK
     Route: 065
     Dates: start: 20220812
  39. ALBUTEROL [Concomitant]
     Active Substance: ALBUTEROL
     Dosage: UNK
     Route: 065
     Dates: start: 20221010, end: 20221010
  40. AMOXICILLIN\CLAVULANIC ACID [Concomitant]
     Active Substance: AMOXICILLIN\CLAVULANIC ACID
     Indication: Rhinorrhoea
     Dosage: 875-125 MG, QD
     Route: 048
     Dates: start: 20220826, end: 20220902
  41. AMOXICILLIN\CLAVULANIC ACID [Concomitant]
     Active Substance: AMOXICILLIN\CLAVULANIC ACID
     Indication: Rhinovirus infection
     Dosage: 875 MG, EVERY 12 HOURS (Q12H)
     Route: 048
     Dates: start: 20220912
  42. APREPITANT [Concomitant]
     Active Substance: APREPITANT
     Dosage: UNK
     Route: 065
     Dates: start: 20220610, end: 20220923
  43. BENZOCAINE [Concomitant]
     Active Substance: BENZOCAINE
     Dosage: UNK
     Route: 065
     Dates: start: 20220911, end: 20220914
  44. BETAMETHASONE [Concomitant]
     Active Substance: BETAMETHASONE\BETAMETHASONE DIPROPIONATE
     Dosage: UNK
     Route: 065
     Dates: start: 20220712, end: 20220909
  45. DOCUSATE [Concomitant]
     Active Substance: DOCUSATE
     Dosage: UNK
     Route: 065
     Dates: start: 20220610
  46. DEXTROMETHORPHAN\GUAIFENESIN [Concomitant]
     Active Substance: DEXTROMETHORPHAN\GUAIFENESIN
     Dosage: UNK
     Route: 065
     Dates: start: 20220826, end: 20220911
  47. ESTRATEST [Concomitant]
     Active Substance: ESTROGENS, ESTERIFIED\METHYLTESTOSTERONE
     Dosage: UNK
     Route: 065
     Dates: start: 20220520, end: 20221125
  48. ENOXAPARIN [Concomitant]
     Active Substance: ENOXAPARIN
     Dosage: UNK
     Route: 065
     Dates: start: 20220625, end: 20221016
  49. LIDOCAINE [Concomitant]
     Active Substance: LIDOCAINE
     Dosage: UNK
     Route: 065
     Dates: start: 20220915, end: 20220915
  50. LORATADINE [Concomitant]
     Active Substance: LORATADINE
     Dosage: UNK
     Route: 065
     Dates: start: 20220812, end: 20220908
  51. OXYCODONE [Concomitant]
     Active Substance: OXYCODONE
     Dosage: UNK
     Route: 065
     Dates: start: 20220914, end: 20220914
  52. ONDANSETRON [Concomitant]
     Active Substance: ONDANSETRON
     Dosage: Q8H  (EVERY 8 HRS)
     Route: 065
     Dates: start: 20220610
  53. PALONOSETRON [Concomitant]
     Active Substance: PALONOSETRON
     Dosage: UNK
     Route: 065
     Dates: start: 20220610, end: 20220923
  54. CILGAVIMAB [Concomitant]
     Active Substance: CILGAVIMAB
     Dosage: UNK
     Route: 065
     Dates: start: 20221104, end: 20221104
  55. ESTROGENS\METHYLTESTOSTERONE [Concomitant]
     Active Substance: ESTROGENS\METHYLTESTOSTERONE
     Dosage: UNK
     Route: 065
     Dates: start: 20220923, end: 20221002
  56. ESTROGENS\METHYLTESTOSTERONE [Concomitant]
     Active Substance: ESTROGENS\METHYLTESTOSTERONE
     Dosage: UNK
     Route: 065
     Dates: start: 20220520
  57. HUMAN IMMUNOGLOBULIN G [Concomitant]
     Active Substance: HUMAN IMMUNOGLOBULIN G
     Dosage: UNK
     Route: 065
     Dates: start: 20221104, end: 20221104
  58. TIXAGEVIMAB [Concomitant]
     Active Substance: TIXAGEVIMAB
     Dosage: UNK
     Route: 065
     Dates: start: 20221104, end: 20221104
  59. SENNA [Concomitant]
     Active Substance: SENNA LEAF\SENNOSIDES\SENNOSIDES A AND B
     Dosage: UNK
     Route: 065
     Dates: start: 20220610
  60. PROCHLORPERAZINE [Concomitant]
     Active Substance: PROCHLORPERAZINE
     Dosage: UNK
     Route: 065
     Dates: start: 20220610, end: 20220826
  61. CODEINE GUAIFENESIN [Concomitant]
     Active Substance: CODEINE PHOSPHATE\GUAIFENESIN
     Dosage: UNK
     Route: 065
     Dates: start: 20220801, end: 20220817
  62. AZITHROMYCIN [Concomitant]
     Active Substance: AZITHROMYCIN
     Indication: Rhinovirus infection
     Dosage: 500 MG, SINGLE
     Route: 042
     Dates: start: 20221008
  63. AZITHROMYCIN [Concomitant]
     Active Substance: AZITHROMYCIN
     Dosage: INCREASED DOSE (500 MG, TWICE)
     Route: 042
     Dates: start: 20221009, end: 20221010
  64. AZITHROMYCIN [Concomitant]
     Active Substance: AZITHROMYCIN
     Dosage: 500 MG, QD
     Route: 048
     Dates: start: 20220816
  65. AZITHROMYCIN [Concomitant]
     Active Substance: AZITHROMYCIN
     Dosage: 250 MG
     Route: 065
     Dates: start: 20220817, end: 20220820
  66. AZITHROMYCIN [Concomitant]
     Active Substance: AZITHROMYCIN
     Dosage: 500 MG, BID
     Route: 048
     Dates: start: 20221009

REACTIONS (12)
  - Febrile neutropenia [Unknown]
  - Rhinovirus infection [Recovered/Resolved]
  - Pneumonia viral [Recovered/Resolved]
  - Pneumonia viral [Recovered/Resolved with Sequelae]
  - Tachycardia [Recovered/Resolved]
  - Pyrexia [Recovered/Resolved]
  - Fatigue [Recovered/Resolved]
  - Productive cough [Recovered/Resolved]
  - Sputum discoloured [Recovered/Resolved]
  - Dyspnoea [Recovered/Resolved]
  - Decreased appetite [Recovered/Resolved with Sequelae]
  - Neutrophil count decreased [Recovered/Resolved]

NARRATIVE: CASE EVENT DATE: 20220909
